FAERS Safety Report 15123828 (Version 2)
Quarter: 2018Q4

REPORT INFORMATION
  Report Type: Report from Study
  Country: JP (occurrence: JP)
  Receive Date: 20180710
  Receipt Date: 20181005
  Transmission Date: 20190204
  Serious: Yes (Other)
  Sender: FDA-Public Use
  Company Number: JP-ALEXION-A201808637

PATIENT
  Age: 81 Year
  Sex: Male
  Weight: 61 kg

DRUGS (24)
  1. PREDNISOLONE. [Concomitant]
     Active Substance: PREDNISOLONE
     Indication: PAROXYSMAL NOCTURNAL HAEMOGLOBINURIA
     Dosage: 30 MG, DAILY
     Route: 065
     Dates: start: 20170329, end: 20170411
  2. DECADRON [Concomitant]
     Active Substance: DEXAMETHASONE
     Indication: PAROXYSMAL NOCTURNAL HAEMOGLOBINURIA
     Dosage: 20 MG, DAILY
     Route: 065
     Dates: start: 20170412, end: 20170415
  3. OPALMON [Concomitant]
     Active Substance: LIMAPROST
     Dosage: 30 ?G, DAILY
     Route: 065
     Dates: end: 20170420
  4. PARIET [Concomitant]
     Active Substance: RABEPRAZOLE SODIUM
     Indication: PRODUCT USED FOR UNKNOWN INDICATION
     Dosage: 10 MG, DAILY
     Route: 065
     Dates: start: 20141203
  5. MIRCERA [Concomitant]
     Active Substance: METHOXY POLYETHYLENE GLYCOL-EPOETIN BETA
     Dosage: 150 ?G, UNK
     Route: 065
     Dates: start: 20180705
  6. MYSLEE [Concomitant]
     Active Substance: ZOLPIDEM TARTRATE
     Indication: PRODUCT USED FOR UNKNOWN INDICATION
     Dosage: 10 MG, DAILY
     Route: 065
     Dates: start: 20170414
  7. NORVASC [Concomitant]
     Active Substance: AMLODIPINE BESYLATE
     Indication: PRODUCT USED FOR UNKNOWN INDICATION
     Dosage: 5 MG, DAILY
     Route: 065
     Dates: start: 20150415, end: 20180202
  8. SOLIRIS [Suspect]
     Active Substance: ECULIZUMAB
     Indication: PAROXYSMAL NOCTURNAL HAEMOGLOBINURIA
     Dosage: 600 MG, QW
     Route: 042
     Dates: start: 20141029, end: 20141119
  9. SOLIRIS [Suspect]
     Active Substance: ECULIZUMAB
     Dosage: 900 MG, UNK
     Route: 042
     Dates: start: 20141203
  10. SAXIZON [Concomitant]
     Active Substance: HYDROCORTISONE SODIUM SUCCINATE
     Indication: PAROXYSMAL NOCTURNAL HAEMOGLOBINURIA
     Dosage: 100 MG, DAILY
     Route: 065
     Dates: start: 20141029, end: 20171011
  11. MIRCERA [Concomitant]
     Active Substance: METHOXY POLYETHYLENE GLYCOL-EPOETIN BETA
     Indication: PAROXYSMAL NOCTURNAL HAEMOGLOBINURIA
     Dosage: 50 ?G, UNK
     Route: 065
     Dates: start: 20141105
  12. MIRCERA [Concomitant]
     Active Substance: METHOXY POLYETHYLENE GLYCOL-EPOETIN BETA
     Dosage: 50 ?G, UNK
     Route: 065
     Dates: end: 20170621
  13. PLAVIX [Concomitant]
     Active Substance: CLOPIDOGREL BISULFATE
     Indication: PAROXYSMAL NOCTURNAL HAEMOGLOBINURIA
     Dosage: 75 MG, DAILY
     Route: 065
     Dates: start: 20071121
  14. COSPANON [Concomitant]
     Active Substance: FLOPROPIONE
     Indication: PRODUCT USED FOR UNKNOWN INDICATION
     Dosage: 120 MG, DAILY
     Route: 065
     Dates: start: 20170429
  15. OPALMON [Concomitant]
     Active Substance: LIMAPROST
     Indication: PRODUCT USED FOR UNKNOWN INDICATION
     Dosage: 15 ?G, DAILY
     Route: 065
     Dates: start: 20141217
  16. MIRCERA [Concomitant]
     Active Substance: METHOXY POLYETHYLENE GLYCOL-EPOETIN BETA
     Dosage: 100 ?G, UNK
     Route: 065
  17. URSO [Concomitant]
     Active Substance: URSODIOL
     Indication: PRODUCT USED FOR UNKNOWN INDICATION
     Dosage: 300 MG, DAILY
     Route: 065
     Dates: start: 20170429
  18. MIRCERA [Concomitant]
     Active Substance: METHOXY POLYETHYLENE GLYCOL-EPOETIN BETA
     Dosage: 75 ?G, UNK
     Route: 065
  19. MOHRUS [Concomitant]
     Active Substance: KETOPROFEN
     Indication: PRODUCT USED FOR UNKNOWN INDICATION
     Dosage: 20 MG, DAILY
     Route: 065
     Dates: start: 20140213
  20. NESP [Concomitant]
     Active Substance: DARBEPOETIN ALFA
     Indication: PAROXYSMAL NOCTURNAL HAEMOGLOBINURIA
     Dosage: 40-50 ?G, DAILY
     Route: 065
     Dates: start: 20161026, end: 20180621
  21. DRUG NOT ADMINISTERED [Concomitant]
     Active Substance: UNSPECIFIED INGREDIENT
     Indication: PRODUCT USED FOR UNKNOWN INDICATION
     Dosage: 7.5 G, DAILY
     Route: 065
     Dates: start: 20180222
  22. SOLU-CORTEF [Concomitant]
     Active Substance: HYDROCORTISONE SODIUM SUCCINATE
     Indication: PAROXYSMAL NOCTURNAL HAEMOGLOBINURIA
     Dosage: 100 MG, DAILY
     Route: 065
     Dates: start: 20171025
  23. FEBURIC [Concomitant]
     Active Substance: FEBUXOSTAT
     Indication: PRODUCT USED FOR UNKNOWN INDICATION
     Dosage: 10 MG, DAILY
     Route: 065
     Dates: start: 20160413
  24. MUCOSTA [Concomitant]
     Active Substance: REBAMIPIDE
     Indication: PRODUCT USED FOR UNKNOWN INDICATION
     Dosage: 300 MG, DAILY
     Route: 065
     Dates: start: 20170329, end: 20170412

REACTIONS (2)
  - Haemolysis [Recovered/Resolved]
  - Inappropriate schedule of product administration [Unknown]

NARRATIVE: CASE EVENT DATE: 20170412
